FAERS Safety Report 21597884 (Version 1)
Quarter: 2022Q4

REPORT INFORMATION
  Report Type: Report from Study
  Country: US (occurrence: US)
  Receive Date: 20221115
  Receipt Date: 20221115
  Transmission Date: 20230112
  Serious: No
  Sender: FDA-Public Use
  Company Number: US-ABBVIE-22K-163-4497650-00

PATIENT
  Sex: Female

DRUGS (2)
  1. IMBRUVICA [Suspect]
     Active Substance: IBRUTINIB
     Indication: Chronic lymphocytic leukaemia
     Route: 048
  2. IMBRUVICA [Suspect]
     Active Substance: IBRUTINIB
     Indication: Chronic lymphocytic leukaemia
     Route: 048

REACTIONS (8)
  - Nail growth abnormal [Unknown]
  - Muscle strain [Unknown]
  - Hair texture abnormal [Unknown]
  - Tongue discolouration [Unknown]
  - Onychoclasis [Unknown]
  - Unevaluable event [Unknown]
  - Arthropathy [Unknown]
  - Osteoarthritis [Unknown]
